FAERS Safety Report 18345882 (Version 2)
Quarter: 2020Q4

REPORT INFORMATION
  Report Type: Spontaneous
  Country: US (occurrence: US)
  Receive Date: 20201005
  Receipt Date: 20201120
  Transmission Date: 20210114
  Serious: No
  Sender: FDA-Public Use
  Company Number: US-SHIRE-US202032067

PATIENT
  Sex: Female
  Weight: 64.85 kg

DRUGS (31)
  1. LEXAPRO [Concomitant]
     Active Substance: ESCITALOPRAM OXALATE
  2. DIPHENHYDRAMINE. [Concomitant]
     Active Substance: DIPHENHYDRAMINE
  3. REFRESH [Concomitant]
     Active Substance: UNSPECIFIED INGREDIENT
  4. TOPIRAMATE. [Concomitant]
     Active Substance: TOPIRAMATE
  5. CRANBERRY FRUIT [Concomitant]
  6. TIZANIDINE HCL [Concomitant]
     Active Substance: TIZANIDINE HYDROCHLORIDE
  7. BENADRYL [Concomitant]
     Active Substance: DIPHENHYDRAMINE HYDROCHLORIDE
  8. EPINEPHRINE. [Concomitant]
     Active Substance: EPINEPHRINE
  9. MELATONIN [Concomitant]
     Active Substance: MELATONIN
  10. ECHINACEA + GOLDENSEAL [Concomitant]
  11. ACETAMINOPHEN. [Concomitant]
     Active Substance: ACETAMINOPHEN
  12. PROTONIX [OMEPRAZOLE] [Concomitant]
     Active Substance: OMEPRAZOLE
  13. FEXOFENADINE [Concomitant]
     Active Substance: FEXOFENADINE HYDROCHLORIDE
  14. HYQVIA [Suspect]
     Active Substance: HUMAN IMMUNOGLOBULIN G\HYALURONIDASE RECOMBINANT HUMAN
     Indication: IMMUNODEFICIENCY COMMON VARIABLE
     Dosage: 40 GRAM, EVERY 4 WK
     Route: 058
     Dates: start: 20101105
  15. SIMVASTATIN. [Concomitant]
     Active Substance: SIMVASTATIN
  16. NORMAL SALINE [Concomitant]
     Active Substance: SODIUM CHLORIDE
  17. VITAMINS NOS [Concomitant]
     Active Substance: VITAMINS
  18. BUSPIRONE [Concomitant]
     Active Substance: BUSPIRONE HYDROCHLORIDE
  19. METFORMIN [Concomitant]
     Active Substance: METFORMIN HYDROCHLORIDE
  20. LIDOCAINE. [Concomitant]
     Active Substance: LIDOCAINE
  21. LUTEIN [Concomitant]
     Active Substance: LUTEIN
  22. PROBIOTICS NOS [Concomitant]
     Active Substance: PROBIOTICS NOS
  23. EVISTA [Concomitant]
     Active Substance: RALOXIFENE HYDROCHLORIDE
  24. TIZANIDINE. [Concomitant]
     Active Substance: TIZANIDINE
  25. VITAMIN D3 [Concomitant]
     Active Substance: CHOLECALCIFEROL
  26. VITAMIN B12 [Concomitant]
     Active Substance: CYANOCOBALAMIN
  27. HYDROXYZINE [Concomitant]
     Active Substance: HYDROXYZINE HYDROCHLORIDE
  28. SINGULAIR [Concomitant]
     Active Substance: MONTELUKAST SODIUM
  29. WELLBUTRIN [Concomitant]
     Active Substance: BUPROPION HYDROCHLORIDE
  30. PROPRANOL [Concomitant]
     Active Substance: PROPRANOLOL HYDROCHLORIDE
  31. POTASSIUM CITRATE. [Concomitant]
     Active Substance: POTASSIUM CITRATE

REACTIONS (2)
  - COVID-19 [Unknown]
  - Influenza like illness [Unknown]
